FAERS Safety Report 19903152 (Version 1)
Quarter: 2021Q4

REPORT INFORMATION
  Report Type: Spontaneous
  Country: US (occurrence: US)
  Receive Date: 20211001
  Receipt Date: 20211001
  Transmission Date: 20220303
  Serious: Yes (Other)
  Sender: FDA-Public Use
  Company Number: US-VALIDUS PHARMACEUTICALS LLC-US-VDP-2021-002633

PATIENT

DRUGS (19)
  1. FUROSEMIDE [Suspect]
     Active Substance: FUROSEMIDE
     Indication: Peripheral swelling
     Dosage: A COUPLE OF PILLS
     Route: 065
     Dates: start: 202103
  2. GOCOVRI [Suspect]
     Active Substance: AMANTADINE
     Indication: Dyskinesia
     Dosage: 274 MG, QD, NIGHTLY AT BEDTIME
     Route: 048
     Dates: start: 20180327
  3. ASPIRIN [Concomitant]
     Active Substance: ASPIRIN
     Dosage: UNK
     Route: 065
  4. CYANOCOBALAMIN [Concomitant]
     Active Substance: CYANOCOBALAMIN
     Dosage: UNK
     Route: 065
  5. BACLOFEN [Concomitant]
     Active Substance: BACLOFEN
     Dosage: UNK
     Route: 065
  6. CARBIDOPA\LEVODOPA [Concomitant]
     Active Substance: CARBIDOPA\LEVODOPA
     Dosage: UNK
     Route: 065
  7. DUTASTERIDE [Concomitant]
     Active Substance: DUTASTERIDE
     Dosage: UNK
     Route: 065
  8. FLUTICASONE [Concomitant]
     Active Substance: FLUTICASONE
     Dosage: UNK, NASAL SPRAY
     Route: 065
  9. IRBESARTAN [Concomitant]
     Active Substance: IRBESARTAN
     Dosage: UNK
     Route: 065
  10. NUPLAZID [Concomitant]
     Active Substance: PIMAVANSERIN TARTRATE
     Dosage: UNK
     Route: 065
  11. OMEPRAZOLE [Concomitant]
     Active Substance: OMEPRAZOLE
     Dosage: UNK
     Route: 065
  12. RASAGILINE [Concomitant]
     Active Substance: RASAGILINE
     Dosage: UNK
     Route: 065
  13. RIVASTIGMINE [Concomitant]
     Active Substance: RIVASTIGMINE
     Dosage: UNK
     Route: 065
  14. TAMSULOSIN [Concomitant]
     Active Substance: TAMSULOSIN
     Dosage: UNK
     Route: 065
  15. TRIHEXYPHENIDYL [Concomitant]
     Active Substance: TRIHEXYPHENIDYL
     Dosage: UNK
     Route: 065
  16. VERAPAMIL [Concomitant]
     Active Substance: VERAPAMIL HYDROCHLORIDE
     Dosage: UNK
     Route: 065
     Dates: end: 202103
  17. EZETIMIBE [Concomitant]
     Active Substance: EZETIMIBE
     Dosage: UNK
     Route: 065
     Dates: start: 202103
  18. LISINOPRIL [Concomitant]
     Active Substance: LISINOPRIL
     Dosage: UNK
     Route: 065
     Dates: start: 202103
  19. BIOFREEZE [CAMPHOR;MENTHOL] [Concomitant]
     Dosage: UNK
     Route: 065

REACTIONS (4)
  - Cardiac failure [Not Recovered/Not Resolved]
  - Pollakiuria [Not Recovered/Not Resolved]
  - Freezing phenomenon [Recovering/Resolving]
  - Peripheral swelling [Recovering/Resolving]

NARRATIVE: CASE EVENT DATE: 20210301
